FAERS Safety Report 5048233-8 (Version None)
Quarter: 2006Q3

REPORT INFORMATION
  Report Type: 
  Country: None (occurrence: None)
  Receive Date: 20060711
  Receipt Date: 20060530
  Transmission Date: 20061208
  Serious: Yes (Hospitalization, Disabling)
  Sender: FDA-Public Use
  Company Number: US-KINGPHARMUSA00001-K200600696

PATIENT
  Age: 48 Year
  Sex: Male

DRUGS (4)
  1. ALTACE [Suspect]
     Dosage: 5 MG, QD
     Route: 048
     Dates: start: 20060320, end: 20060523
  2. HYDROCHLOROTHIAZIDE [Suspect]
     Indication: HYPERTENSION
     Dosage: 25 MG, QD
     Route: 048
     Dates: start: 20060407, end: 20060523
  3. INSIDON ^CIBA-GEIGY^ [Concomitant]
     Indication: DEPRESSION
     Dosage: 150 MG, UNK
     Route: 048
  4. VOLTAREN DISPERS ^GEIGY^ [Concomitant]
     Indication: ARTHRALGIA
     Dosage: 3
     Route: 048
     Dates: start: 20060315, end: 20060412

REACTIONS (5)
  - HEADACHE [None]
  - NAUSEA [None]
  - OPTIC ISCHAEMIC NEUROPATHY [None]
  - PAPILLOEDEMA [None]
  - VISUAL DISTURBANCE [None]
